FAERS Safety Report 8347436-4 (Version None)
Quarter: 2012Q2

REPORT INFORMATION
  Report Type: 
  Country: None (occurrence: None)
  Receive Date: 20120509
  Receipt Date: 20120424
  Transmission Date: 20120825
  Serious: Yes (Other)
  Sender: FDA-Public Use
  Company Number: US-ROCHE-1035677

PATIENT
  Sex: Male
  Weight: 84.898 kg

DRUGS (1)
  1. ACCUTANE [Suspect]
     Indication: ACNE CYSTIC
     Dates: start: 19950201, end: 19950701

REACTIONS (12)
  - EMOTIONAL DISTRESS [None]
  - COLONIC POLYP [None]
  - ANAL POLYP [None]
  - DIVERTICULUM [None]
  - OSTEOARTHRITIS [None]
  - IRRITABLE BOWEL SYNDROME [None]
  - COLITIS ULCERATIVE [None]
  - DEPRESSION [None]
  - RECTAL POLYP [None]
  - ANXIETY [None]
  - INFLAMMATORY BOWEL DISEASE [None]
  - SUICIDAL IDEATION [None]
